FAERS Safety Report 9032549 (Version 2)
Quarter: 2013Q1

REPORT INFORMATION
  Report Type: Report from Study
  Country: JP (occurrence: JP)
  Receive Date: 20130125
  Receipt Date: 20130206
  Transmission Date: 20140127
  Serious: Yes (Hospitalization)
  Sender: FDA-Public Use
  Company Number: JP-PFIZER INC-2011021357

PATIENT
  Age: 77 Year
  Sex: Male
  Weight: 64 kg

DRUGS (21)
  1. AXITINIB [Suspect]
     Indication: METASTATIC RENAL CELL CARCINOMA
     Dosage: 5 MG, 2X/DAY
     Route: 048
     Dates: start: 20110117, end: 20110130
  2. AXITINIB [Suspect]
     Dosage: 5 MG, 2X/DAY
     Route: 048
     Dates: start: 20110131, end: 20110419
  3. AXITINIB [Suspect]
     Dosage: 3 MG, 2X/DAY
     Route: 048
     Dates: start: 20110419
  4. AXITINIB [Suspect]
     Dosage: 2 MG, 2X/DAY
     Dates: start: 20120611, end: 20130117
  5. LUDIOMIL TABLET [Concomitant]
     Indication: DEPRESSION
     Dosage: UNK
     Dates: start: 2009
  6. LORAMET [Concomitant]
     Indication: INSOMNIA
     Dosage: UNK
     Dates: start: 2009
  7. DEPAS [Concomitant]
     Indication: ANXIETY
     Dosage: UNK
     Dates: start: 2002
  8. MUCOSTA [Concomitant]
     Indication: GASTRITIS
     Dosage: UNK
     Dates: start: 20110117
  9. THEODUR /JPN/ [Concomitant]
     Indication: ASTHMA
     Dosage: UNK
     Dates: start: 1960
  10. MEPTIN [Concomitant]
     Indication: ASTHMA
     Dosage: UNK
     Dates: start: 1960
  11. NAUZELIN [Concomitant]
     Indication: PROPHYLAXIS OF NAUSEA AND VOMITING
     Dosage: UNK
     Dates: start: 201012
  12. ALOSENN [Concomitant]
     Indication: CONSTIPATION PROPHYLAXIS
     Dosage: UNK
     Dates: start: 201011
  13. AMLODIN [Concomitant]
     Indication: HYPERTENSION
     Dosage: UNK
     Route: 048
     Dates: start: 20110201
  14. TETRAMIDE [Concomitant]
     Indication: INSOMNIA
     Dosage: UNK
     Route: 048
     Dates: start: 20110130
  15. LOXOPROFEN [Concomitant]
     Indication: PERIODONTITIS
     Dosage: AS NEEDED
     Route: 048
     Dates: start: 20110130
  16. LOXOPROFEN [Concomitant]
     Indication: PYREXIA
  17. MYSLEE [Concomitant]
     Indication: INSOMNIA
     Dosage: AS NEEDED
     Route: 048
     Dates: start: 20110131
  18. ROHYPNOL [Concomitant]
     Indication: INSOMNIA
     Dosage: UNK
     Route: 048
     Dates: start: 20110130
  19. AZUNOL [Concomitant]
     Indication: RECTAL ULCER
     Dosage: AS NEEDED
     Dates: start: 20110206
  20. SELBEX [Concomitant]
     Indication: PROPHYLAXIS
     Dosage: UNK
     Route: 048
     Dates: start: 20110214
  21. PURSENNID [Concomitant]
     Indication: PROPHYLAXIS
     Dosage: UNK
     Route: 048
     Dates: start: 20110210

REACTIONS (4)
  - Pyrexia [Recovered/Resolved]
  - Fatigue [Recovering/Resolving]
  - Tinnitus [Recovered/Resolved]
  - Decreased appetite [Recovered/Resolved]
